FAERS Safety Report 9099344 (Version 3)
Quarter: 2013Q1

REPORT INFORMATION
  Report Type: Spontaneous
  Country: US (occurrence: US)
  Receive Date: 20130214
  Receipt Date: 20130312
  Transmission Date: 20140127
  Serious: Yes (Hospitalization, Other)
  Sender: FDA-Public Use
  Company Number: US-INCYTE CORPORATION-2013IN000271

PATIENT
  Age: 72 None
  Sex: Female
  Weight: 58 kg

DRUGS (9)
  1. JAKAFI [Suspect]
     Indication: MYELOFIBROSIS
     Dosage: 25 MG, BID
     Route: 048
     Dates: start: 20120101
  2. VIDAZA [Suspect]
     Indication: BLAST CELL COUNT INCREASED
     Dosage: NOT SPECIFIED
     Route: 065
     Dates: start: 201301
  3. FOSAMAX [Concomitant]
  4. ATENOLOL [Concomitant]
  5. ALLOPURINOL [Concomitant]
  6. FENTANYL [Concomitant]
  7. PROTONIX [Concomitant]
  8. OXYCODONE [Concomitant]
  9. XANAX [Concomitant]

REACTIONS (2)
  - Acute myeloid leukaemia [Unknown]
  - Faecaloma [Recovered/Resolved]
